FAERS Safety Report 7376384-1 (Version None)
Quarter: 2011Q1

REPORT INFORMATION
  Report Type: 
  Country: None (occurrence: None)
  Receive Date: 20110325
  Receipt Date: 20101012
  Transmission Date: 20110831
  Serious: Yes (Other)
  Sender: FDA-Public Use
  Company Number: US-BAYER-201027932NA

PATIENT
  Sex: Female
  Weight: 81.179 kg

DRUGS (7)
  1. YASMIN [Suspect]
     Indication: PRODUCT USED FOR UNKNOWN INDICATION
     Dosage: UNK
     Route: 048
     Dates: start: 20051101, end: 20091101
  2. PROZAC [Concomitant]
  3. AMITRIPTYLINE HCL [Concomitant]
  4. ANALGESICS [Concomitant]
  5. MAXALT [Concomitant]
  6. OMEPRAZOLE [Concomitant]
  7. IBUPROFEN [Concomitant]

REACTIONS (6)
  - CHOLECYSTITIS CHRONIC [None]
  - CHOLECYSTITIS [None]
  - BILIARY DYSKINESIA [None]
  - GALLBLADDER DISORDER [None]
  - ABDOMINAL PAIN UPPER [None]
  - GALLBLADDER CHOLESTEROLOSIS [None]
